FAERS Safety Report 8436624-4 (Version None)
Quarter: 2012Q2

REPORT INFORMATION
  Report Type: 
  Country: None (occurrence: None)
  Receive Date: 20120614
  Receipt Date: 20120604
  Transmission Date: 20120825
  Serious: Yes (Hospitalization, Other)
  Sender: FDA-Public Use
  Company Number: US-JNJFOC-20120601882

PATIENT
  Sex: Female
  Weight: 68.04 kg

DRUGS (12)
  1. TOPROL-XL [Concomitant]
     Indication: CARDIAC DISORDER
     Route: 065
     Dates: start: 20110929
  2. ASPIRIN [Concomitant]
     Indication: ISCHAEMIC HEART DISEASE PROPHYLAXIS
     Route: 065
  3. DURAGESIC-100 [Suspect]
     Dosage: DOSE DECREASED TO 50 UG/HR 3 YEARS AGO
     Route: 062
  4. DURAGESIC-100 [Suspect]
     Route: 062
  5. LISINOPRIL [Concomitant]
     Indication: HYPERTENSION
     Route: 065
  6. TOPROL-XL [Concomitant]
     Indication: BRAIN OPERATION
     Route: 065
     Dates: start: 20110929
  7. CELEBREX [Concomitant]
     Indication: INFLAMMATION
     Route: 065
  8. DURAGESIC-100 [Suspect]
     Indication: PAIN
     Route: 062
  9. DURAGESIC-100 [Suspect]
     Dosage: DOSE DECREASED ABOUT A YEAR AGO
     Route: 062
     Dates: start: 20110101
  10. DURAGESIC-100 [Suspect]
     Route: 062
  11. ASPIRIN [Concomitant]
     Indication: ANTICOAGULANT THERAPY
     Route: 065
  12. HYDROCODONE [Concomitant]
     Indication: PAIN
     Dosage: ABOUT 3 YEARS AGO
     Route: 065

REACTIONS (14)
  - WITHDRAWAL SYNDROME [None]
  - PRODUCT QUALITY ISSUE [None]
  - INTERVERTEBRAL DISC DEGENERATION [None]
  - TREMOR [None]
  - RESTLESS LEGS SYNDROME [None]
  - WRONG TECHNIQUE IN DRUG USAGE PROCESS [None]
  - INAPPROPRIATE SCHEDULE OF DRUG ADMINISTRATION [None]
  - MALAISE [None]
  - INTRACRANIAL ANEURYSM [None]
  - SENSORY DISTURBANCE [None]
  - PAIN [None]
  - NAUSEA [None]
  - FEAR [None]
  - ABDOMINAL DISCOMFORT [None]
